FAERS Safety Report 5317542-7 (Version None)
Quarter: 2007Q2

REPORT INFORMATION
  Report Type: 
  Country: None (occurrence: None)
  Receive Date: 20070507
  Receipt Date: 20070426
  Transmission Date: 20071010
  Serious: Yes (Hospitalization)
  Sender: FDA-Public Use
  Company Number: PHEH2007US05532

PATIENT
  Age: 62 Year
  Sex: Female

DRUGS (22)
  1. ZELNORM [Suspect]
     Indication: CONSTIPATION
     Dosage: 6 MG, BID
     Route: 048
     Dates: start: 20060101, end: 20070416
  2. MIRAPEX [Concomitant]
  3. NEXIUM [Concomitant]
  4. PREMARIN [Concomitant]
  5. ZAROXOLYN [Concomitant]
  6. LASIX [Concomitant]
  7. ACCOLATE [Concomitant]
  8. ALBUTEROL [Concomitant]
  9. B12 [Concomitant]
  10. NEURONTIN [Concomitant]
  11. SINEMET [Concomitant]
  12. MECLIZINE [Concomitant]
  13. LEXAPRO [Concomitant]
  14. PERCOCET [Concomitant]
  15. DARVOCET-N 100 [Concomitant]
  16. SPIRIVA [Concomitant]
  17. EVISTA [Concomitant]
  18. ATIVAN [Concomitant]
  19. XOPENEX [Concomitant]
  20. ATROVENT [Concomitant]
  21. ENABLEX [Concomitant]
     Indication: POLLAKIURIA
     Dosage: 7.5 MG, QD
     Dates: start: 20060101
  22. ALLERGY MEDICATION [Concomitant]

REACTIONS (7)
  - APHASIA [None]
  - ASTHMA [None]
  - DEAFNESS [None]
  - DEPRESSED LEVEL OF CONSCIOUSNESS [None]
  - DYSARTHRIA [None]
  - DYSPNOEA [None]
  - HEADACHE [None]
